FAERS Safety Report 9701099 (Version 2)
Quarter: 2013Q4

REPORT INFORMATION
  Report Type: Spontaneous
  Country: US (occurrence: US)
  Receive Date: 20131121
  Receipt Date: 20131205
  Transmission Date: 20140711
  Serious: Yes (Hospitalization)
  Sender: FDA-Public Use
  Company Number: US-JNJFOC-20131107991

PATIENT
  Age: 22 Year
  Sex: Male
  Weight: 87 kg

DRUGS (19)
  1. HALDOL [Suspect]
     Indication: PSYCHOTIC DISORDER
     Route: 048
     Dates: start: 20131016, end: 20131018
  2. HALDOL [Suspect]
     Indication: PSYCHOTIC DISORDER
     Route: 048
     Dates: start: 20131019
  3. HALDOL [Suspect]
     Indication: SCHIZOPHRENIA
     Route: 048
     Dates: start: 20131016, end: 20131018
  4. HALDOL [Suspect]
     Indication: SCHIZOPHRENIA
     Route: 048
     Dates: start: 20131019
  5. BENADRYL [Suspect]
     Indication: SEDATION
     Route: 065
     Dates: start: 20131019
  6. ATIVAN [Suspect]
     Indication: AGITATION
     Route: 048
     Dates: start: 20131019
  7. ATIVAN [Suspect]
     Indication: AGITATION
     Route: 048
     Dates: start: 20131017
  8. ATIVAN [Suspect]
     Indication: INSOMNIA
     Route: 048
     Dates: start: 20131017
  9. ATIVAN [Suspect]
     Indication: INSOMNIA
     Route: 048
     Dates: start: 20131019
  10. ATIVAN [Suspect]
     Indication: SEDATION
     Route: 048
     Dates: start: 20131019
  11. ATIVAN [Suspect]
     Indication: SEDATION
     Route: 048
     Dates: start: 20131017
  12. PROLIXIN [Suspect]
     Indication: SCHIZOPHRENIA
     Route: 048
     Dates: start: 20131018
  13. PROLIXIN [Suspect]
     Indication: SCHIZOPHRENIA
     Route: 048
     Dates: start: 20131017, end: 20131018
  14. COGENTIN [Suspect]
     Indication: EXTRAPYRAMIDAL DISORDER
     Route: 048
     Dates: start: 20131017
  15. TRAZODONE [Suspect]
     Indication: INSOMNIA
     Route: 048
     Dates: start: 20131018
  16. SEROQUEL [Suspect]
     Indication: AGITATION
     Route: 048
     Dates: start: 20131018, end: 201310
  17. SEROQUEL [Suspect]
     Indication: ANXIETY
     Route: 048
     Dates: start: 20131018, end: 201310
  18. DILANTIN [Suspect]
     Indication: CONVULSION
     Route: 065
     Dates: start: 20131020
  19. DILANTIN [Suspect]
     Indication: CONVULSION
     Route: 065
     Dates: start: 20131021

REACTIONS (10)
  - Hepatitis acute [Unknown]
  - Convulsion [Recovered/Resolved]
  - Psychotic disorder [Recovered/Resolved]
  - Intracranial lipoma [Unknown]
  - Somnolence [Unknown]
  - Insomnia [Unknown]
  - Bipolar disorder [Unknown]
  - Hypomagnesaemia [Unknown]
  - Agitation [Unknown]
  - Sedation [Unknown]
